FAERS Safety Report 24234081 (Version 1)
Quarter: 2024Q3

REPORT INFORMATION
  Report Type: Spontaneous
  Country: CN (occurrence: CN)
  Receive Date: 20240821
  Receipt Date: 20240821
  Transmission Date: 20241017
  Serious: Yes (Other)
  Sender: MERCK
  Company Number: CN-009507513-2408CHN006213

PATIENT
  Age: 65 Year
  Sex: Female
  Weight: 73.4 kg

DRUGS (2)
  1. INVANZ [Suspect]
     Active Substance: ERTAPENEM SODIUM
     Indication: Cholecystitis acute
     Dosage: 1 GRAM, QD
     Route: 041
     Dates: start: 20240814, end: 20240814
  2. SODIUM CHLORIDE [Concomitant]
     Active Substance: SODIUM CHLORIDE
     Indication: Cholecystitis acute
     Dosage: 100 MILLILITER, QD
     Route: 041
     Dates: start: 20240814, end: 20240814

REACTIONS (3)
  - Tachypnoea [Recovering/Resolving]
  - Chest discomfort [Recovering/Resolving]
  - Product use in unapproved indication [Unknown]

NARRATIVE: CASE EVENT DATE: 20240814
